FAERS Safety Report 5770009-4 (Version None)
Quarter: 2008Q2

REPORT INFORMATION
  Report Type: 
  Country: None (occurrence: None)
  Receive Date: 20080613
  Receipt Date: 20080417
  Transmission Date: 20081010
  Serious: No
  Sender: FDA-Public Use
  Company Number: US-ABBOTT-08P-163-0447939-00

PATIENT
  Sex: Female

DRUGS (8)
  1. HUMIRA [Suspect]
     Indication: RHEUMATOID ARTHRITIS
     Route: 058
     Dates: start: 20050801, end: 20070601
  2. HUMIRA [Suspect]
     Route: 058
     Dates: start: 20080219, end: 20080312
  3. HUMIRA [Suspect]
     Route: 058
     Dates: start: 20080312
  4. PROPACET 100 [Concomitant]
     Indication: RHEUMATOID ARTHRITIS
     Route: 048
  5. IBUROFEN [Concomitant]
     Indication: RHEUMATOID ARTHRITIS
     Route: 048
  6. METHOCARBAMOL [Concomitant]
     Indication: MUSCLE RELAXANT THERAPY
     Route: 048
  7. ESCITALOPRAM OXALATE [Concomitant]
     Indication: DEPRESSION
     Route: 048
  8. AXOTAL [Concomitant]
     Indication: MIGRAINE
     Route: 048

REACTIONS (1)
  - MENSTRUATION DELAYED [None]
